FAERS Safety Report 12933220 (Version 3)
Quarter: 2016Q4

REPORT INFORMATION
  Report Type: Report from Study
  Country: AU (occurrence: AU)
  Receive Date: 20161111
  Receipt Date: 20161220
  Transmission Date: 20170207
  Serious: Yes (Other)
  Sender: FDA-Public Use
  Company Number: AU-REGENERON PHARMACEUTICALS, INC.-2016-23650

PATIENT

DRUGS (3)
  1. EYLEA [Suspect]
     Active Substance: AFLIBERCEPT
     Dosage: UNK
     Dates: start: 201610, end: 201610
  2. EYLEA [Suspect]
     Active Substance: AFLIBERCEPT
     Dosage: UNK
     Dates: start: 20161111, end: 20161111
  3. EYLEA [Suspect]
     Active Substance: AFLIBERCEPT
     Indication: NEOVASCULAR AGE-RELATED MACULAR DEGENERATION
     Dosage: 2 MG, DOSE REGIMEN UNDISCLOSED, 2 MG, EVERY 2-5 WEEKS
     Route: 031
     Dates: start: 20160811

REACTIONS (8)
  - Depressed mood [Unknown]
  - Visual impairment [Unknown]
  - Altered visual depth perception [Unknown]
  - Ear discomfort [Not Recovered/Not Resolved]
  - Influenza [Not Recovered/Not Resolved]
  - Vision blurred [Unknown]
  - Injection site pain [Recovered/Resolved]
  - Scan abnormal [Unknown]

NARRATIVE: CASE EVENT DATE: 2016
